FAERS Safety Report 7833706-2 (Version None)
Quarter: 2011Q4

REPORT INFORMATION
  Report Type: 
  Country: None (occurrence: None)
  Receive Date: 20111024
  Receipt Date: 20111018
  Transmission Date: 20120403
  Serious: Yes (Other)
  Sender: FDA-Public Use
  Company Number: US-CEPHALON-2011005420

PATIENT
  Sex: Female
  Weight: 110 kg

DRUGS (5)
  1. NUVIGIL [Suspect]
     Indication: SLEEP APNOEA SYNDROME
     Route: 048
     Dates: start: 20100201
  2. NUVIGIL [Suspect]
     Route: 048
     Dates: start: 20110901
  3. ABILIFY [Concomitant]
  4. KLONOPIN [Concomitant]
     Dates: start: 20020101
  5. ADDERALL 5 [Concomitant]

REACTIONS (2)
  - SOMNOLENCE [None]
  - DRUG TOLERANCE [None]
